FAERS Safety Report 24965289 (Version 4)
Quarter: 2025Q3

REPORT INFORMATION
  Report Type: Report from Study
  Country: CA (occurrence: CA)
  Receive Date: 20250213
  Receipt Date: 20250813
  Transmission Date: 20251020
  Serious: Yes (Other)
  Sender: BAUSCH AND LOMB
  Company Number: CA-BAUSCH-BL-2020-035605

PATIENT
  Age: 51 Year
  Sex: Male

DRUGS (3)
  1. SILIQ [Suspect]
     Active Substance: BRODALUMAB
     Indication: Psoriasis
     Dosage: 210MG/ 1.5 ML, WEEKLY (WEEK 0-2)
     Route: 058
     Dates: start: 20201128, end: 20201212
  2. SILIQ [Suspect]
     Active Substance: BRODALUMAB
     Dosage: 210MG/ 1.5 ML, Q2 WEEKS
     Route: 058
     Dates: start: 20201226, end: 2025
  3. SILIQ [Suspect]
     Active Substance: BRODALUMAB
     Dosage: 210MG/ 1.5 ML, Q2 WEEKS
     Route: 058
     Dates: start: 202503

REACTIONS (18)
  - Knee operation [Unknown]
  - Paraesthesia [Recovering/Resolving]
  - Brain fog [Recovering/Resolving]
  - Dyspepsia [Not Recovered/Not Resolved]
  - Dandruff [Unknown]
  - Sleep disorder [Unknown]
  - Procedural pain [Recovering/Resolving]
  - Psoriasis [Not Recovered/Not Resolved]
  - Disease recurrence [Not Recovered/Not Resolved]
  - Dermatitis allergic [Unknown]
  - Dermatitis atopic [Unknown]
  - Asthenia [Recovering/Resolving]
  - Headache [Unknown]
  - Candida infection [Unknown]
  - Fatigue [Recovering/Resolving]
  - Injection site haemorrhage [Recovering/Resolving]
  - Intentional product use issue [Unknown]
  - Incorrect dose administered [Unknown]

NARRATIVE: CASE EVENT DATE: 20201129
